FAERS Safety Report 8178829-6 (Version None)
Quarter: 2012Q1

REPORT INFORMATION
  Report Type: 
  Country: None (occurrence: None)
  Receive Date: 20120302
  Receipt Date: 20120217
  Transmission Date: 20120608
  Serious: Yes (Disabling, Other)
  Sender: FDA-Public Use
  Company Number: TR-AMGEN-TURSP2012011344

PATIENT
  Age: 43 Year
  Sex: Female

DRUGS (1)
  1. ENBREL [Suspect]
     Indication: RHEUMATOID ARTHRITIS
     Dosage: 50 MG, WEEKLY
     Route: 058
     Dates: start: 20111122, end: 20120205

REACTIONS (7)
  - OCULAR HYPERAEMIA [None]
  - EYE OEDEMA [None]
  - PRURITUS GENERALISED [None]
  - INFLUENZA [None]
  - FEMORAL NECK FRACTURE [None]
  - GENERALISED ERYTHEMA [None]
  - MOVEMENT DISORDER [None]
